FAERS Safety Report 4386233-1 (Version None)
Quarter: 2004Q2

REPORT INFORMATION
  Report Type: 
  Country: None (occurrence: None)
  Receive Date: 20040622
  Receipt Date: 20040609
  Transmission Date: 20050107
  Serious: Yes (Other)
  Sender: FDA-Public Use
  Company Number: 2004034949

PATIENT
  Age: 19 Year
  Sex: Male

DRUGS (6)
  1. NEURONTIN [Suspect]
     Indication: NEUROPATHIC PAIN
     Dosage: 1800 MG (600 MG, 3 IN 1 D), ORAL
     Route: 048
     Dates: start: 20040416
  2. PARACETAMOL (PARACETAMOL) [Suspect]
     Indication: PAIN
     Dosage: 4 GRAM (1 GRAM,  4 IN 1 D), ORAL
     Route: 048
     Dates: start: 20040408, end: 20040513
  3. PAROXETINE HCL [Concomitant]
  4. TRAZODONE HCL [Concomitant]
  5. AMITRIPTYLINE HCL [Concomitant]
  6. TRIMETHOPRIM [Concomitant]

REACTIONS (2)
  - BLOOD ALKALINE PHOSPHATASE INCREASED [None]
  - LIVER FUNCTION TEST ABNORMAL [None]
